FAERS Safety Report 23941260 (Version 1)
Quarter: 2024Q2

REPORT INFORMATION
  Report Type: Spontaneous
  Country: FR (occurrence: FR)
  Receive Date: 20240605
  Receipt Date: 20240605
  Transmission Date: 20240715
  Serious: Yes (Other)
  Sender: FDA-Public Use
  Company Number: FR-AFSSAPS-TS2024000595

PATIENT
  Age: 41 Year
  Sex: Male
  Weight: 100 kg

DRUGS (5)
  1. AMOXICILLIN [Suspect]
     Active Substance: AMOXICILLIN
     Indication: Endocarditis
     Dosage: 2 GRAM, EVERY FOUR HOUR
     Route: 042
     Dates: start: 20240430, end: 20240503
  2. GENTAMICIN [Concomitant]
     Active Substance: GENTAMICIN
     Indication: Endocarditis
     Dosage: 250 MILLIGRAM TOTAL
     Route: 042
     Dates: start: 20240430, end: 20240430
  3. AMOXICILLIN [Concomitant]
     Active Substance: AMOXICILLIN
     Indication: Bronchitis
     Dosage: 1 GRAM, FOUR TIMES/DAY
     Route: 048
     Dates: start: 20240427, end: 20240429
  4. GADOLINIUM [Concomitant]
     Active Substance: GADOLINIUM
     Indication: Computerised tomogram
     Dosage: 1 MILLIGRAM TOTAL
     Route: 042
     Dates: start: 20240430
  5. CLOXACILLIN [Concomitant]
     Active Substance: CLOXACILLIN
     Indication: Endocarditis
     Dosage: 2 GRAM, EVERY FOUR HOUR
     Route: 042
     Dates: start: 20240430, end: 20240503

REACTIONS (2)
  - Acute kidney injury [Recovered/Resolved]
  - Crystalluria [Recovered/Resolved]

NARRATIVE: CASE EVENT DATE: 20240430
